FAERS Safety Report 12742812 (Version 1)
Quarter: 2016Q3

REPORT INFORMATION
  Report Type: Spontaneous
  Country: US (occurrence: US)
  Receive Date: 20160914
  Receipt Date: 20160914
  Transmission Date: 20161109
  Serious: Yes (Hospitalization)
  Sender: FDA-Public Use
  Company Number: None

PATIENT
  Age: 9 Year
  Sex: Male
  Weight: 61.1 kg

DRUGS (6)
  1. MERCAPTOPURINE. [Suspect]
     Active Substance: MERCAPTOPURINE
  2. CYCLOPHOSPHAMIDE. [Suspect]
     Active Substance: CYCLOPHOSPHAMIDE
     Dates: end: 20160815
  3. METHOTREXATE. [Suspect]
     Active Substance: METHOTREXATE
     Dates: end: 20160808
  4. VINCRISTINE SULFATE. [Suspect]
     Active Substance: VINCRISTINE SULFATE
     Dates: end: 20160905
  5. ONCASPAR [Suspect]
     Active Substance: PEGASPARGASE
     Dates: end: 20160829
  6. CYTARABINE. [Suspect]
     Active Substance: CYTARABINE
     Dates: end: 20160825

REACTIONS (8)
  - Neutropenia [None]
  - Oxygen saturation decreased [None]
  - Aspartate aminotransferase increased [None]
  - Blood bilirubin increased [None]
  - Sepsis [None]
  - Hypotension [None]
  - Bacterial test positive [None]
  - Pyrexia [None]

NARRATIVE: CASE EVENT DATE: 20160910
